FAERS Safety Report 5876856-2 (Version None)
Quarter: 2008Q3

REPORT INFORMATION
  Report Type: 
  Country: None (occurrence: None)
  Receive Date: 20080909
  Receipt Date: 20080909
  Transmission Date: 20090109
  Serious: Yes (Other)
  Sender: FDA-Public Use
  Company Number: None

PATIENT
  Age: 68 Year
  Sex: Male
  Weight: 72.5755 kg

DRUGS (7)
  1. ASPIRIN [Suspect]
     Indication: ISCHAEMIC HEART DISEASE PROPHYLAXIS
     Dosage: 81 MG, ONCE, ORAL
     Route: 048
     Dates: start: 20080610
  2. ASPIRIN [Suspect]
     Indication: ISCHAEMIC HEART DISEASE PROPHYLAXIS
     Dosage: 81 MG, QD, ORAL
     Route: 048
     Dates: start: 20040101
  3. DIOVAN [Concomitant]
  4. METAMUCIL-2 [Concomitant]
  5. GAS X [Concomitant]
  6. CENTRUM [Concomitant]
  7. CLONAZEPAM [Concomitant]

REACTIONS (5)
  - COLONIC POLYP [None]
  - HEPATITIS C [None]
  - NOCTURIA [None]
  - PROSTATE CANCER [None]
  - RECTAL HAEMORRHAGE [None]
